FAERS Safety Report 18355552 (Version 1)
Quarter: 2020Q4

REPORT INFORMATION
  Report Type: Spontaneous
  Country: CN (occurrence: CN)
  Receive Date: 20201007
  Receipt Date: 20201007
  Transmission Date: 20210114
  Serious: Yes (Death, Other)
  Sender: FDA-Public Use
  Company Number: CN-BRACCO-2020CN04058

PATIENT
  Age: 61 Year
  Sex: Female

DRUGS (2)
  1. HEPARIN SODIUM. [Concomitant]
     Active Substance: HEPARIN SODIUM
     Indication: ANTICOAGULANT THERAPY
     Dosage: 3000 U
     Route: 041
     Dates: start: 20200927, end: 20200927
  2. IOPAMIRO [Suspect]
     Active Substance: IOPAMIDOL
     Indication: ANGIOCARDIOGRAM
     Dosage: 30 ML, SINGLE
     Route: 042
     Dates: start: 20200927, end: 20200927

REACTIONS (2)
  - Contraindicated product administered [Unknown]
  - Anaphylactic shock [Fatal]

NARRATIVE: CASE EVENT DATE: 20200927
